FAERS Safety Report 5120261-3 (Version None)
Quarter: 2006Q4

REPORT INFORMATION
  Report Type: 
  Country: None (occurrence: None)
  Receive Date: 20061004
  Receipt Date: 20060427
  Transmission Date: 20070319
  Serious: Yes (Hospitalization)
  Sender: FDA-Public Use
  Company Number: FRWYE586327APR06

PATIENT
  Age: 42 Year
  Sex: Female

DRUGS (2)
  1. ENBREL [Suspect]
     Indication: SPONDYLOARTHROPATHY
     Route: 058
     Dates: start: 20050321
  2. METHOTREXATE [Suspect]
     Indication: SPONDYLOARTHROPATHY
     Dosage: UNKNOWN
     Dates: end: 20050101

REACTIONS (5)
  - ERYTHEMA NODOSUM [None]
  - INJECTION SITE REACTION [None]
  - LEISHMANIASIS [None]
  - NEUTROPENIA [None]
  - PANCYTOPENIA [None]
